FAERS Safety Report 5631017-7 (Version None)
Quarter: 2008Q1

REPORT INFORMATION
  Report Type: 
  Country: None (occurrence: None)
  Receive Date: 20080131
  Receipt Date: 20071116
  Transmission Date: 20080703
  Serious: No
  Sender: FDA-Public Use
  Company Number: 163-21880-07111035

PATIENT
  Age: 76 Year
  Sex: Female

DRUGS (14)
  1. REVLIMID [Suspect]
     Indication: MULTIPLE MYELOMA
     Dosage: 25 MG, 1 IN 1 D, ORAL
     Route: 048
     Dates: start: 20071117
  2. CRESTOR [Concomitant]
  3. TOPROL-XL [Concomitant]
  4. COUMADIN [Concomitant]
  5. AMBIEN [Concomitant]
  6. CALCIUM (CALCIUM) [Concomitant]
  7. MAGNESIUM (MAGNESIUM) [Concomitant]
  8. CENTRUM SILVER (CENTRUM SILVER) [Concomitant]
  9. FOLIC ACID [Concomitant]
  10. GLUCOMIDE (GLIBOMET) [Concomitant]
  11. POTASSIUM (POTASSIUM) [Concomitant]
  12. VITAMIN E [Concomitant]
  13. VITAMIN B (VITAMIN B) [Concomitant]
  14. ASCORBIC ACID [Concomitant]

REACTIONS (3)
  - CONSTIPATION [None]
  - PRURITUS [None]
  - TOOTH DISORDER [None]
